FAERS Safety Report 6125899-2 (Version None)
Quarter: 2009Q1

REPORT INFORMATION
  Report Type: 
  Country: None (occurrence: None)
  Receive Date: 20090320
  Receipt Date: 20090317
  Transmission Date: 20090719
  Serious: Yes (Other)
  Sender: FDA-Public Use
  Company Number: FR-BRISTOL-MYERS SQUIBB COMPANY-14447908

PATIENT
  Age: 60 Year
  Sex: Female
  Weight: 93 kg

DRUGS (7)
  1. APROVEL FILM-COATED TABS 300 MG [Suspect]
     Indication: HYPERTENSION
     Route: 048
     Dates: start: 20050101, end: 20081024
  2. CRESTOR [Suspect]
     Indication: DYSLIPIDAEMIA
     Route: 048
     Dates: start: 20050101, end: 20081024
  3. CRESTOR [Suspect]
     Indication: DIABETES MELLITUS
     Route: 048
     Dates: start: 20050101, end: 20081024
  4. JANUVIA [Suspect]
  5. METFORMIN HCL [Concomitant]
     Indication: TYPE 2 DIABETES MELLITUS
     Dates: start: 20050101
  6. ATENOLOL [Concomitant]
     Indication: TACHYCARDIA
     Dates: start: 20080101
  7. EVISTA [Concomitant]
     Dates: start: 20050101

REACTIONS (1)
  - BLOOD CREATINE PHOSPHOKINASE INCREASED [None]
